FAERS Safety Report 6015806-5 (Version None)
Quarter: 2008Q4

REPORT INFORMATION
  Report Type: 
  Country: None (occurrence: None)
  Receive Date: 20081216
  Receipt Date: 20030603
  Transmission Date: 20090506
  Serious: Yes (Hospitalization)
  Sender: FDA-Public Use
  Company Number: HQWYE570111JUN03

PATIENT
  Age: 1 Day
  Sex: Female

DRUGS (2)
  1. EFFEXOR XR [Suspect]
     Dosage: 300 MG 1X PER 1 DAY, TRANSPLACENTAL ; 450 MG 1X PER 1 DAY, TRANSPLACENTAL
     Route: 064
     Dates: end: 20030109
  2. SEROQUEL [Suspect]
     Dosage: 300 MG 1X PER 1 DAY, TRANSPLACENTAL
     Route: 064

REACTIONS (2)
  - NEONATAL DISORDER [None]
  - RESPIRATORY DISORDER NEONATAL [None]
